FAERS Safety Report 24227094 (Version 2)
Quarter: 2024Q3

REPORT INFORMATION
  Report Type: Spontaneous
  Country: AU (occurrence: AU)
  Receive Date: 20240820
  Receipt Date: 20240826
  Transmission Date: 20241017
  Serious: No
  Sender: ABBVIE
  Company Number: AU-ABBVIE-5880226

PATIENT
  Age: 29 Year
  Sex: Female

DRUGS (5)
  1. BOTOX [Suspect]
     Active Substance: ONABOTULINUMTOXINA
     Indication: Muscle spasticity
     Dosage: TIME INTERVAL: AS NECESSARY
     Route: 065
     Dates: start: 202207, end: 202207
  2. BOTOX [Suspect]
     Active Substance: ONABOTULINUMTOXINA
     Indication: Muscle spasticity
     Dosage: TIME INTERVAL: AS NECESSARY
     Route: 065
     Dates: start: 20231205, end: 20231205
  3. BOTOX [Suspect]
     Active Substance: ONABOTULINUMTOXINA
     Indication: Muscle spasticity
     Dosage: TIME INTERVAL: AS NECESSARY
     Route: 065
     Dates: start: 20240612, end: 20240612
  4. BOTOX [Suspect]
     Active Substance: ONABOTULINUMTOXINA
     Indication: Muscle spasticity
     Dosage: TIME INTERVAL: AS NECESSARY
     Route: 065
     Dates: start: 1999, end: 1999
  5. BOTOX [Suspect]
     Active Substance: ONABOTULINUMTOXINA
     Indication: Muscle spasticity
     Dosage: TIME INTERVAL: AS NECESSARY
     Route: 065
     Dates: start: 2005, end: 2005

REACTIONS (7)
  - Paraesthesia [Unknown]
  - Muscle atrophy [Unknown]
  - Urinary incontinence [Unknown]
  - Muscular weakness [Unknown]
  - Sensory loss [Unknown]
  - Asthenia [Unknown]
  - Temperature perception test abnormal [Unknown]

NARRATIVE: CASE EVENT DATE: 20231201
